FAERS Safety Report 5232537-X (Version None)
Quarter: 2007Q1

REPORT INFORMATION
  Report Type: 
  Country: None (occurrence: None)
  Receive Date: 20070207
  Receipt Date: 20070130
  Transmission Date: 20070707
  Serious: Yes (Congenital Anomaly)
  Sender: FDA-Public Use
  Company Number: JP-JPN-A20053168

PATIENT

DRUGS (8)
  1. PAXIL [Suspect]
     Indication: POST-TRAUMATIC STRESS DISORDER
     Dates: start: 20030204, end: 20041102
  2. LUVOX [Suspect]
     Indication: POST-TRAUMATIC STRESS DISORDER
     Dosage: 25MG SEE DOSAGE TEXT
     Dates: start: 20040219, end: 20041022
  3. RIVOTRIL [Concomitant]
     Indication: POST-TRAUMATIC STRESS DISORDER
     Dates: start: 20030204
  4. ZYPREXA [Concomitant]
     Indication: POST-TRAUMATIC STRESS DISORDER
     Dates: start: 20030703, end: 20040116
  5. HORIZON [Concomitant]
     Dates: end: 20040527
  6. SOLANAX [Concomitant]
  7. LUDIOMIL [Concomitant]
  8. LEXOTAN [Concomitant]

REACTIONS (2)
  - CONGENITAL VITREOUS ANOMALY [None]
  - DRUG EXPOSURE DURING PREGNANCY [None]
